FAERS Safety Report 12322135 (Version 1)
Quarter: 2016Q2

REPORT INFORMATION
  Report Type: Spontaneous
  Country: US (occurrence: US)
  Receive Date: 20160502
  Receipt Date: 20160502
  Transmission Date: 20160815
  Serious: Yes (Other)
  Sender: FDA-Public Use
  Company Number: ADR-2015-01226

PATIENT
  Age: 41 Year
  Sex: Female

DRUGS (6)
  1. COMPOUNDED BACLOFEN [Suspect]
     Active Substance: BACLOFEN
     Dosage: 2162.8 MCG/DAY
     Route: 037
     Dates: end: 20150618
  2. COMPOUNDED BACLOFEN [Suspect]
     Active Substance: BACLOFEN
     Dosage: 216.1 MCG/DAY
     Route: 037
     Dates: start: 20150618
  3. BUPIVACAINE. [Suspect]
     Active Substance: BUPIVACAINE
     Dosage: 0.1351 MG/DAY
     Route: 037
     Dates: start: 20150618
  4. BUPIVACAINE. [Suspect]
     Active Substance: BUPIVACAINE
     Route: 037
     Dates: end: 20150618
  5. CLONIDINE. [Suspect]
     Active Substance: CLONIDINE
     Route: 037
     Dates: end: 20150618
  6. CLONIDINE. [Suspect]
     Active Substance: CLONIDINE
     Dosage: 13.51 MCG/DAY
     Route: 037
     Dates: start: 20150618

REACTIONS (5)
  - Drug withdrawal syndrome [Recovering/Resolving]
  - Underdose [Recovering/Resolving]
  - Urinary tract infection [Recovering/Resolving]
  - Seizure [Recovering/Resolving]
  - Incorrect dosage administered [Recovering/Resolving]

NARRATIVE: CASE EVENT DATE: 20150618
